FAERS Safety Report 4601522-0 (Version None)
Quarter: 2005Q1

REPORT INFORMATION
  Report Type: 
  Country: None (occurrence: None)
  Receive Date: 20050308
  Receipt Date: 20050303
  Transmission Date: 20050727
  Serious: Yes (Other)
  Sender: FDA-Public Use
  Company Number: PHBS2005JP03162

PATIENT

DRUGS (1)
  1. TOFRANIL [Suspect]
     Route: 048

REACTIONS (1)
  - SUICIDE ATTEMPT [None]
